FAERS Safety Report 5567199-5 (Version None)
Quarter: 2007Q4

REPORT INFORMATION
  Report Type: 
  Country: None (occurrence: None)
  Receive Date: 20071130
  Receipt Date: 20070816
  Transmission Date: 20080405
  Serious: No
  Sender: FDA-Public Use
  Company Number: US200708002616

PATIENT
  Age: 51 Year
  Sex: Female

DRUGS (2)
  1. BYETTA [Suspect]
     Indication: TYPE 2 DIABETES MELLITUS
     Dosage: 10 UG, SUBCUTANEOUS
     Route: 058
     Dates: start: 20070805
  2. GLIPIZIDE [Concomitant]

REACTIONS (5)
  - FEELING ABNORMAL [None]
  - INJECTION SITE HAEMORRHAGE [None]
  - INJECTION SITE PAIN [None]
  - NAUSEA [None]
  - VISUAL ACUITY REDUCED [None]
